FAERS Safety Report 23887690 (Version 3)
Quarter: 2024Q3

REPORT INFORMATION
  Report Type: Report from Study
  Country: US (occurrence: US)
  Receive Date: 20240523
  Receipt Date: 20240729
  Transmission Date: 20241017
  Serious: Yes (Other)
  Sender: UCB
  Company Number: US-UCBSA-2024024848

PATIENT
  Age: 77 Year
  Sex: Female

DRUGS (1)
  1. CERTOLIZUMAB PEGOL [Suspect]
     Active Substance: CERTOLIZUMAB PEGOL
     Indication: Rheumatoid arthritis
     Dosage: 200 MILLIGRAM (1 UNIT, 4 DOSES RECEIVED, 1 PER MONTH FREQUENCY)
     Route: 058
     Dates: start: 20240515, end: 20240516

REACTIONS (2)
  - Rheumatoid arthritis [Recovered/Resolved]
  - Incorrect dose administered [Unknown]

NARRATIVE: CASE EVENT DATE: 20240515
